FAERS Safety Report 9227242 (Version 2)
Quarter: 2013Q2

REPORT INFORMATION
  Report Type: Spontaneous
  Country: CN (occurrence: CN)
  Receive Date: 20130412
  Receipt Date: 20130423
  Transmission Date: 20140414
  Serious: Yes (Other)
  Sender: FDA-Public Use
  Company Number: PHHY2013CN034669

PATIENT
  Age: 86 Year
  Sex: Female

DRUGS (2)
  1. MIACALCIC [Suspect]
     Indication: OSTEOPOROSIS
     Dosage: 1 DF, PER DAY (ONCE PER DAY)
     Route: 045
     Dates: start: 20130330
  2. MIACALCIC [Suspect]
     Dosage: 1 DF, (EVERY OTHER DAY)
     Route: 045
     Dates: end: 20130408

REACTIONS (2)
  - Myocardial infarction [Unknown]
  - Blood pressure increased [Unknown]
